FAERS Safety Report 5049170-5 (Version None)
Quarter: 2006Q2

REPORT INFORMATION
  Report Type: 
  Country: None (occurrence: None)
  Receive Date: 20060613
  Receipt Date: 20060215
  Transmission Date: 20061013
  Serious: Yes (Disabling)
  Sender: FDA-Public Use
  Company Number: 2006-00342

PATIENT
  Sex: Male
  Weight: 60.8 kg

DRUGS (4)
  1. VELCADE [Suspect]
     Indication: AMYLOIDOSIS
     Dates: start: 20050101, end: 20060115
  2. DEXAMETHASONE [Concomitant]
  3. DOXIL [Concomitant]
  4. NEURONTIN [Concomitant]

REACTIONS (2)
  - INSOMNIA [None]
  - NEUROPATHY PERIPHERAL [None]
